FAERS Safety Report 7145736-7 (Version None)
Quarter: 2010Q4

REPORT INFORMATION
  Report Type: 
  Country: None (occurrence: None)
  Receive Date: 20101208
  Receipt Date: 20101202
  Transmission Date: 20110411
  Serious: Yes (Hospitalization)
  Sender: FDA-Public Use
  Company Number: BR-ABBOTT-10P-020-0689468-00

PATIENT
  Sex: Female
  Weight: 65 kg

DRUGS (4)
  1. HUMIRA [Suspect]
     Indication: RHEUMATOID ARTHRITIS
     Route: 058
     Dates: start: 20100608, end: 20101105
  2. UNKNOWN DRUG [Concomitant]
     Indication: BLOOD CHOLESTEROL INCREASED
  3. UNKNOWN DRUG [Concomitant]
     Indication: HYPERTENSION
  4. UNKNOWN DRUG [Concomitant]
     Indication: RHEUMATOID ARTHRITIS

REACTIONS (4)
  - HAEMOGLOBIN DECREASED [None]
  - KIDNEY INFECTION [None]
  - PNEUMONIA [None]
  - WEIGHT DECREASED [None]
